FAERS Safety Report 8785985 (Version 2)
Quarter: 2012Q4

REPORT INFORMATION
  Report Type: 
  Country: JP (occurrence: JP)
  Receive Date: 20120914
  Receipt Date: 20120925
  Transmission Date: 20130627
  Serious: Yes (Hospitalization)
  Sender: FDA-Public Use
  Company Number: PHHY2012JP079597

PATIENT
  Age: 97 Year
  Sex: Female

DRUGS (3)
  1. CO-DIOVAN [Suspect]
     Indication: HYPERTENSION
     Dosage: 1 DF, daily
     Route: 048
     Dates: start: 20120705, end: 20120910
  2. NAUZELIN [Concomitant]
     Dosage: 330 mg, UNK
     Route: 048
  3. JANUVIA [Concomitant]
     Dosage: 50 mg, UNK
     Route: 048

REACTIONS (1)
  - Anaemia [Recovered/Resolved]
